FAERS Safety Report 17159000 (Version 1)
Quarter: 2019Q4

REPORT INFORMATION
  Report Type: Spontaneous
  Country: US (occurrence: US)
  Receive Date: 20191216
  Receipt Date: 20191216
  Transmission Date: 20200122
  Serious: Yes (Other)
  Sender: FDA-Public Use
  Company Number: US-BAYER-2019-224587

PATIENT
  Age: 14 Year
  Sex: Female

DRUGS (1)
  1. SORAFENIB (RAF KINASE INHIBITOR) [Suspect]
     Active Substance: SORAFENIB
     Dosage: UNK

REACTIONS (5)
  - Product use issue [None]
  - Drug intolerance [None]
  - Off label use [None]
  - Product use in unapproved indication [None]
  - Ejection fraction decreased [None]
